FAERS Safety Report 23115181 (Version 1)
Quarter: 2023Q4

REPORT INFORMATION
  Report Type: Spontaneous
  Country: NL (occurrence: NL)
  Receive Date: 20231027
  Receipt Date: 20231027
  Transmission Date: 20240109
  Serious: Yes (Hospitalization)
  Sender: FDA-Public Use
  Company Number: None

PATIENT
  Age: 69 Year
  Sex: Male
  Weight: 98 kg

DRUGS (2)
  1. BISOPROLOL [Suspect]
     Active Substance: BISOPROLOL\BISOPROLOL FUMARATE
     Indication: Hypertension
     Dosage: 7.5 MILLIGRAM DAILY; 1 PIECE 3 TIMES A DAY, BRAND NAME NOT SPECIFIED
     Dates: start: 20221001, end: 20230918
  2. OZEMPIC [Suspect]
     Active Substance: SEMAGLUTIDE
     Indication: Diabetes mellitus
     Dosage: 0.5 MG INJECTION ONCE A WEEK, 1.5ML + ACCESSORIES, FORM STRENGTH : 1.34 MG/ML 0.5MG/DO
     Dates: start: 20230702

REACTIONS (1)
  - Atrioventricular block complete [Recovered/Resolved]
